FAERS Safety Report 9973402 (Version 1)
Quarter: 2014Q1

REPORT INFORMATION
  Report Type: Spontaneous
  Country: GB (occurrence: GB)
  Receive Date: 20140306
  Receipt Date: 20140306
  Transmission Date: 20141002
  Serious: Yes (Hospitalization)
  Sender: FDA-Public Use
  Company Number: GB-PFIZER INC-2014058241

PATIENT
  Age: 70 Year
  Sex: Male
  Weight: 93.9 kg

DRUGS (4)
  1. EPIRUBICIN HCL [Suspect]
     Indication: GASTROOESOPHAGEAL CANCER
     Dosage: 104MG (DATE OF MOST RECENT ADMINISTRATION 03JUL2013)
     Route: 042
     Dates: start: 20130522
  2. CISPLATIN [Suspect]
     Indication: GASTROOESOPHAGEAL CANCER
     Dosage: 125 MG (DATE OF MOST RECENT ADMINISTRATION 07JUL2013)
     Route: 042
     Dates: start: 20130522
  3. AVASTIN [Suspect]
     Indication: GASTROOESOPHAGEAL CANCER
     Dosage: 700 MG (DATE OF MOST RECENT ADMINISTRATION 07JUL2013)
     Route: 042
     Dates: start: 20130522
  4. XELODA [Suspect]
     Indication: GASTROOESOPHAGEAL CANCER
     Dosage: 2500 MG, DAILY (DATE OF MOST RECENT ADMINISTRATION 23JUL2013)
     Route: 048
     Dates: start: 20130522

REACTIONS (4)
  - Lower respiratory tract infection [Recovered/Resolved]
  - Sinusitis [Unknown]
  - Dyspnoea [Recovered/Resolved]
  - Asthenia [Unknown]
